FAERS Safety Report 6321968-2 (Version None)
Quarter: 2009Q3

REPORT INFORMATION
  Report Type: 
  Country: None (occurrence: None)
  Receive Date: 20090812
  Receipt Date: 20090611
  Transmission Date: 20100115
  Serious: Yes (Hospitalization, Other)
  Sender: FDA-Public Use
  Company Number: WAES 0906USA02026

PATIENT
  Age: 39 Year
  Sex: Female
  Weight: 101.1521 kg

DRUGS (4)
  1. ISENTRESS [Suspect]
     Dosage: PO
     Route: 048
  2. EPZICOM [Concomitant]
  3. HYDROCHLOROTHIAZIDE (METOPROLOL) [Concomitant]
  4. METOPROLOL [Concomitant]

REACTIONS (2)
  - RENAL FAILURE [None]
  - RENAL FAILURE ACUTE [None]
